FAERS Safety Report 23042210 (Version 1)
Quarter: 2023Q4

REPORT INFORMATION
  Report Type: Spontaneous
  Country: US (occurrence: US)
  Receive Date: 20231008
  Receipt Date: 20231008
  Transmission Date: 20240110
  Serious: No
  Sender: FDA-Public Use
  Company Number: US-HORIZON THERAPEUTICS-HZN-2023-004837

PATIENT

DRUGS (36)
  1. KRYSTEXXA [Suspect]
     Active Substance: PEGLOTICASE
     Indication: Gouty tophus
     Dosage: FIRST INFUSION
     Route: 042
     Dates: start: 20210816
  2. KRYSTEXXA [Suspect]
     Active Substance: PEGLOTICASE
     Dosage: SECOND INFUSION
     Route: 042
     Dates: start: 20210830
  3. KRYSTEXXA [Suspect]
     Active Substance: PEGLOTICASE
     Dosage: THIRD INFUSION
     Route: 042
     Dates: start: 20210913
  4. KRYSTEXXA [Suspect]
     Active Substance: PEGLOTICASE
     Dosage: FOURTH INFUSION
     Route: 042
     Dates: start: 20211004
  5. KRYSTEXXA [Suspect]
     Active Substance: PEGLOTICASE
     Dosage: FIFTH INFUSION
     Route: 042
     Dates: start: 20211018
  6. KRYSTEXXA [Suspect]
     Active Substance: PEGLOTICASE
     Dosage: SIXTH INFUSION
     Route: 042
     Dates: start: 20211101
  7. KRYSTEXXA [Suspect]
     Active Substance: PEGLOTICASE
     Dosage: SEVENTH INFUSION
     Route: 042
     Dates: start: 20211115
  8. KRYSTEXXA [Suspect]
     Active Substance: PEGLOTICASE
     Dosage: EIGHTH INFUSION
     Route: 042
     Dates: start: 20211129
  9. KRYSTEXXA [Suspect]
     Active Substance: PEGLOTICASE
     Dosage: NINTH INFUSION
     Route: 042
     Dates: start: 20211213
  10. KRYSTEXXA [Suspect]
     Active Substance: PEGLOTICASE
     Dosage: TENTH INFUSION
     Route: 042
     Dates: start: 20211227
  11. KRYSTEXXA [Suspect]
     Active Substance: PEGLOTICASE
     Dosage: ELEVENTH INFUSION
     Route: 042
     Dates: start: 20220117
  12. KRYSTEXXA [Suspect]
     Active Substance: PEGLOTICASE
     Dosage: TWELFTH INFUSION
     Route: 042
     Dates: start: 20220131
  13. METHOTREXATE [Suspect]
     Active Substance: METHOTREXATE
     Indication: Product used for unknown indication
     Dosage: FIRST DOSE, 15 MG, WEEKLY
     Route: 058
     Dates: start: 202107
  14. METHOTREXATE [Suspect]
     Active Substance: METHOTREXATE
     Dosage: SECOND DOSE, 15 MG, WEEKLY
     Route: 058
  15. METHOTREXATE [Suspect]
     Active Substance: METHOTREXATE
     Dosage: THIRD DOSE, 15 MG, WEEKLY
     Route: 058
  16. METHOTREXATE [Suspect]
     Active Substance: METHOTREXATE
     Dosage: FOURTH DOSE, 15 MG, WEEKLY
     Route: 058
  17. METHOTREXATE [Suspect]
     Active Substance: METHOTREXATE
     Dosage: FIFTH DOSE, 15 MG, WEEKLY
     Route: 058
  18. METHOTREXATE [Suspect]
     Active Substance: METHOTREXATE
     Dosage: SIXTH DOSE, 15 MG, WEEKLY
     Route: 058
  19. METHOTREXATE [Suspect]
     Active Substance: METHOTREXATE
     Dosage: SEVENTH DOSE, 15 MG, WEEKLY
     Route: 058
  20. FOLIC ACID [Suspect]
     Active Substance: FOLIC ACID
     Indication: Product used for unknown indication
     Dosage: 1 MG, DAILY
     Route: 065
  21. METHYLPREDNISOLONE [Concomitant]
     Active Substance: METHYLPREDNISOLONE
     Dosage: 125 MG
     Route: 042
  22. FEXOFENADINE [Concomitant]
     Active Substance: FEXOFENADINE HYDROCHLORIDE
     Dosage: FIRST DOSE, 180 MG
     Route: 048
     Dates: start: 20210816
  23. FEXOFENADINE [Concomitant]
     Active Substance: FEXOFENADINE HYDROCHLORIDE
     Dosage: SECOND DOSE, 180 MG
     Dates: start: 20210830
  24. FEXOFENADINE [Concomitant]
     Active Substance: FEXOFENADINE HYDROCHLORIDE
     Dosage: THIRD DOSE, 180 MG
     Dates: start: 20210913
  25. FEXOFENADINE [Concomitant]
     Active Substance: FEXOFENADINE HYDROCHLORIDE
     Dosage: FOURTH DOSE 180 MG
     Dates: start: 20211004
  26. FEXOFENADINE [Concomitant]
     Active Substance: FEXOFENADINE HYDROCHLORIDE
     Dosage: FIFTH DOSE, 180 MG
     Dates: start: 20211018
  27. FEXOFENADINE [Concomitant]
     Active Substance: FEXOFENADINE HYDROCHLORIDE
     Dosage: SIXTH DOSE 180 MG
     Dates: start: 20211101
  28. FEXOFENADINE [Concomitant]
     Active Substance: FEXOFENADINE HYDROCHLORIDE
     Dosage: SEVENTH DOSE, 180 MG
     Dates: start: 20211115
  29. FEXOFENADINE [Concomitant]
     Active Substance: FEXOFENADINE HYDROCHLORIDE
     Dosage: EIGHTH DOSE, 180 MG
     Dates: start: 20211129
  30. FEXOFENADINE [Concomitant]
     Active Substance: FEXOFENADINE HYDROCHLORIDE
     Dosage: NINETH DOSE, 180 MG
     Dates: start: 20211213
  31. FEXOFENADINE [Concomitant]
     Active Substance: FEXOFENADINE HYDROCHLORIDE
     Dosage: TENTH DOSE, 180 MG
     Dates: start: 20211227
  32. FEXOFENADINE [Concomitant]
     Active Substance: FEXOFENADINE HYDROCHLORIDE
     Dosage: ELEVENTH DOSE, 180 MG
     Dates: start: 20220117
  33. FEXOFENADINE [Concomitant]
     Active Substance: FEXOFENADINE HYDROCHLORIDE
     Dosage: 12TH DOSE 180 MG
     Dates: start: 20220131
  34. METOPROLOL SUCCINATE [Concomitant]
     Active Substance: METOPROLOL SUCCINATE
     Dosage: 50 MG, ONCE DAILY
     Route: 048
  35. HYDROCODONE BITARTRATE AND ACETAMINOPHEN [Concomitant]
     Active Substance: ACETAMINOPHEN\HYDROCODONE BITARTRATE
     Indication: Gout
     Dosage: 5-325 MG ORALLY EVERY 6 HRS PRN
     Route: 048
  36. LOSARTAN POTASSIUM [Concomitant]
     Active Substance: LOSARTAN POTASSIUM
     Dosage: 25 MG, QD, ONCE DAILY
     Route: 048

REACTIONS (8)
  - Loss of personal independence in daily activities [Unknown]
  - Gout [Recovering/Resolving]
  - Fatigue [Unknown]
  - Blood uric acid increased [Unknown]
  - Off label use [Unknown]
  - Illness [Unknown]
  - Viral infection [Unknown]
  - Nausea [Unknown]

NARRATIVE: CASE EVENT DATE: 20210816
